FAERS Safety Report 6955154-X (Version None)
Quarter: 2010Q3

REPORT INFORMATION
  Report Type: 
  Country: None (occurrence: None)
  Receive Date: 20100826
  Receipt Date: 20100812
  Transmission Date: 20110219
  Serious: Yes (Other)
  Sender: FDA-Public Use
  Company Number: 1000015779

PATIENT
  Sex: Female

DRUGS (2)
  1. MEMANTINE HCL [Suspect]
     Indication: DEMENTIA ALZHEIMER'S TYPE
     Dosage: 5 MG (5 MG, 1 IN 1 D)
     Dates: start: 20100211, end: 20100214
  2. RISPERIDONE [Concomitant]

REACTIONS (5)
  - DYSARTHRIA [None]
  - HALLUCINATION [None]
  - NAUSEA [None]
  - TREMOR [None]
  - VOMITING [None]
